FAERS Safety Report 8794682 (Version 2)
Quarter: 2013Q1

REPORT INFORMATION
  Report Type: Spontaneous
  Country: US (occurrence: US)
  Receive Date: 20120917
  Receipt Date: 20130126
  Transmission Date: 20140127
  Serious: No
  Sender: FDA-Public Use
  Company Number: US-009507513-1209USA006203

PATIENT
  Age: 67 Year
  Sex: Male

DRUGS (5)
  1. FOSAMAX [Suspect]
     Indication: BONE DISORDER
     Dosage: 70 MG, QW
     Route: 048
     Dates: start: 20120903
  2. PRAVASTATIN SODIUM [Concomitant]
  3. NEXIUM [Concomitant]
  4. CALCIUM (UNSPECIFIED) [Concomitant]
  5. ASPIRIN [Concomitant]

REACTIONS (2)
  - Tooth infection [Not Recovered/Not Resolved]
  - Pain in jaw [Not Recovered/Not Resolved]
